FAERS Safety Report 9416760 (Version 1)
Quarter: 2013Q3

REPORT INFORMATION
  Report Type: Spontaneous
  Country: TR (occurrence: TR)
  Receive Date: 20130724
  Receipt Date: 20130724
  Transmission Date: 20140515
  Serious: Yes (Life-Threatening)
  Sender: FDA-Public Use
  Company Number: TR-MYLANLABS-2013S1015983

PATIENT
  Age: 30 Year
  Sex: Female

DRUGS (1)
  1. AMPICILLIN + SULBACTAM [Suspect]
     Indication: AMNIOTIC CAVITY INFECTION
     Dosage: INFUSED WITHIN 1 MINUTE

REACTIONS (2)
  - Cardiac arrest [Recovered/Resolved]
  - Anaphylactic reaction [Recovered/Resolved]
